FAERS Safety Report 7352822-5 (Version None)
Quarter: 2011Q1

REPORT INFORMATION
  Report Type: 
  Country: None (occurrence: None)
  Receive Date: 20110310
  Receipt Date: 20110310
  Transmission Date: 20110831
  Serious: No
  Sender: FDA-Public Use
  Company Number: None

PATIENT
  Age: 58 Year
  Sex: Female
  Weight: 77.5651 kg

DRUGS (1)
  1. TOPIRAMATE [Suspect]
     Indication: MIGRAINE
     Dosage: ONCE
     Dates: start: 20110114, end: 20110306

REACTIONS (16)
  - NECK PAIN [None]
  - PARAESTHESIA [None]
  - MUSCULOSKELETAL PAIN [None]
  - PRODUCT SUBSTITUTION ISSUE [None]
  - DYSPNOEA [None]
  - HEADACHE [None]
  - CHAPPED LIPS [None]
  - SOMNOLENCE [None]
  - NAUSEA [None]
  - DIPLOPIA [None]
  - DRY MOUTH [None]
  - MEMORY IMPAIRMENT [None]
  - NIGHTMARE [None]
  - FEELING ABNORMAL [None]
  - PAIN IN JAW [None]
  - TRANSIENT ISCHAEMIC ATTACK [None]
